FAERS Safety Report 8935095 (Version 2)
Quarter: 2014Q2

REPORT INFORMATION
  Report Type: Spontaneous
  Country: US (occurrence: US)
  Receive Date: 20121129
  Receipt Date: 20130902
  Transmission Date: 20141212
  Serious: No
  Sender: FDA-Public Use
  Company Number: US-ASTRAZENECA-2011SE68890

PATIENT
  Age: 59 Year
  Sex: Female
  Weight: 61.2 kg

DRUGS (13)
  1. NEXIUM [Suspect]
     Route: 048
  2. METHADONE [Concomitant]
  3. MS CONTIN [Concomitant]
  4. ROXYCODONE [Concomitant]
  5. ZOMA [Concomitant]
  6. LOSARATAN POT [Concomitant]
  7. HORIZONT [Concomitant]
  8. ZIVACOR [Concomitant]
  9. REQUIP [Concomitant]
     Indication: RESTLESS LEGS SYNDROME
  10. ZOMIG [Concomitant]
     Indication: HEADACHE
  11. URISSETTE K [Concomitant]
     Indication: NEPHROLITHIASIS
  12. FLEXARIL PRN [Concomitant]
     Indication: BACK PAIN
  13. DEMEROL [Concomitant]

REACTIONS (3)
  - Gastrooesophageal reflux disease [Unknown]
  - Choking [Unknown]
  - Drug dose omission [Unknown]
